FAERS Safety Report 9352368 (Version 1)
Quarter: 2013Q2

REPORT INFORMATION
  Report Type: Spontaneous
  Country: DE (occurrence: DE)
  Receive Date: 20130617
  Receipt Date: 20130617
  Transmission Date: 20140414
  Serious: Yes (Other)
  Sender: FDA-Public Use
  Company Number: DE-ELI_LILLY_AND_COMPANY-DE201306002052

PATIENT
  Sex: Male

DRUGS (7)
  1. FORSTEO [Suspect]
     Indication: OSTEOPOROSIS
     Dosage: UNK, QD
     Route: 058
     Dates: start: 20130304, end: 201305
  2. FALITHROM [Concomitant]
  3. TORASEMID [Concomitant]
  4. BISOPROLOL [Concomitant]
  5. PANTOPRAZOL [Concomitant]
  6. ARCOXIA [Concomitant]
  7. FENTANYL [Concomitant]

REACTIONS (4)
  - Arrhythmia [Recovered/Resolved]
  - Hyperhidrosis [Recovered/Resolved]
  - Dizziness [Recovered/Resolved]
  - Muscle spasms [Recovered/Resolved]
